FAERS Safety Report 5595938-6 (Version None)
Quarter: 2008Q1

REPORT INFORMATION
  Report Type: 
  Country: None (occurrence: None)
  Receive Date: 20080118
  Receipt Date: 20080111
  Transmission Date: 20080703
  Serious: Yes (Death)
  Sender: FDA-Public Use
  Company Number: JP-SANOFI-SYNTHELABO-A01200800493

PATIENT
  Sex: Male

DRUGS (3)
  1. FLUOROURACIL [Concomitant]
     Dosage: 650MG/BODY IN BOLUS THEN 4000MG/BODY AS CONTINUOUS INFUSION ON DAY 1-2
     Route: 042
     Dates: start: 20071119, end: 20071119
  2. ELPLAT [Suspect]
     Indication: DRUG USE FOR UNKNOWN INDICATION
     Dosage: 140MG/BODY IN INFUSION ON DAY 1
     Route: 042
     Dates: start: 20071119, end: 20071119
  3. ISOVORIN [Concomitant]
     Dosage: 325MG/BODY IN INFUSION ON DAY 1
     Route: 042
     Dates: start: 20071119, end: 20071119

REACTIONS (2)
  - NECROTISING FASCIITIS [None]
  - SEPSIS [None]
